FAERS Safety Report 18262838 (Version 1)
Quarter: 2020Q3

REPORT INFORMATION
  Report Type: Spontaneous
  Country: GR (occurrence: GR)
  Receive Date: 20200914
  Receipt Date: 20200914
  Transmission Date: 20201103
  Serious: Yes (Death, Life-Threatening, Hospitalization, Other)
  Sender: FDA-Public Use
  Company Number: GR-AMGEN-GRCSP2020146074

PATIENT
  Age: 44 Year
  Sex: Female

DRUGS (3)
  1. ROMIPLOSTIM [Suspect]
     Active Substance: ROMIPLOSTIM
     Indication: IMMUNE THROMBOCYTOPENIA
     Dosage: 1 MILLIGRAM/KILOGRAM, QWK
     Route: 065
  2. LEVOTHYROXINE. [Concomitant]
     Active Substance: LEVOTHYROXINE
  3. ENOXAPARIN [Concomitant]
     Active Substance: ENOXAPARIN
     Dosage: 1 MILLIGRAM/KILOGRAM, BID
     Route: 058

REACTIONS (10)
  - Subclavian vein thrombosis [Unknown]
  - Brain oedema [Unknown]
  - Death [Fatal]
  - Platelet count decreased [Unknown]
  - Cerebral venous sinus thrombosis [Unknown]
  - Extradural haematoma [Unknown]
  - Subdural haematoma [Unknown]
  - Brain herniation [Unknown]
  - Jugular vein thrombosis [Unknown]
  - General physical health deterioration [Unknown]
